FAERS Safety Report 6610405-6 (Version None)
Quarter: 2010Q1

REPORT INFORMATION
  Report Type: 
  Country: None (occurrence: None)
  Receive Date: 20100302
  Receipt Date: 20100122
  Transmission Date: 20100710
  Serious: Yes (Death, Hospitalization)
  Sender: FDA-Public Use
  Company Number: US-NOVOPROD-303407

PATIENT
  Sex: Male
  Weight: 98 kg

DRUGS (15)
  1. NOVOLOG MIX 70/30 [Suspect]
     Dosage: 18 IU, BID
     Route: 058
  2. NOVOLIN 70/30 [Suspect]
     Dosage: 18 U, BID AS OUTPATIENT
  3. NOVOLIN 70/30 [Suspect]
     Dosage: 120 IU, BEFORE SUPPER
     Route: 058
  4. LISINOPRIL [Concomitant]
     Indication: HYPERTENSION
     Dosage: 20 MG TAB, TAKE ONE-HALF
     Route: 048
  5. METOPROLOL TARTRATE [Concomitant]
     Indication: HYPERTENSION
     Dosage: 1 TAB, SUCCINATE
  6. BUMETANIDE [Concomitant]
     Indication: OEDEMA
     Dosage: 2 MG TAB, TAKE 2 TABS
     Route: 048
  7. ZOLPIDEM TARTRATE [Concomitant]
     Indication: INSOMNIA
     Dosage: 5, TAKE 1 TAB
     Route: 048
  8. FERROUS GLUCONATE [Concomitant]
     Indication: ANAEMIA
  9. GABAPENTIN [Concomitant]
     Indication: PAIN MANAGEMENT
     Dosage: 300 MG, TAKE 1 CQP
     Route: 048
  10. LIDOCAINE [Concomitant]
     Indication: PAIN IN EXTREMITY
  11. METHYL SALICYLATE [Concomitant]
     Indication: DRUG USE FOR UNKNOWN INDICATION
  12. PRAMIPEXOLE DIHYDROCHLORIDE [Concomitant]
     Indication: RESTLESS LEGS SYNDROME
  13. BABY ASPIRIN [Concomitant]
     Indication: DRUG USE FOR UNKNOWN INDICATION
     Dosage: 300 MG, INSERT 1 SUP
     Route: 054
  14. FLUNISOLIDE [Concomitant]
     Indication: NASAL CONGESTION
     Route: 045
  15. INSULIN GLARGINE [Concomitant]
     Indication: TYPE 2 DIABETES MELLITUS
     Dosage: UNK
     Route: 058

REACTIONS (13)
  - BACTERIURIA [None]
  - BLOOD GLUCOSE INCREASED [None]
  - BLOOD UREA INCREASED [None]
  - BLOOD URINE PRESENT [None]
  - CEREBRAL ATROPHY [None]
  - CEREBROVASCULAR ACCIDENT [None]
  - HAEMATOCRIT DECREASED [None]
  - HAEMOGLOBIN DECREASED [None]
  - HYDROCEPHALUS [None]
  - PROTEIN URINE PRESENT [None]
  - STAPHYLOCOCCAL INFECTION [None]
  - UNRESPONSIVE TO STIMULI [None]
  - WHITE BLOOD CELLS URINE POSITIVE [None]
